FAERS Safety Report 8336304-X (Version None)
Quarter: 2012Q2

REPORT INFORMATION
  Report Type: 
  Country: None (occurrence: None)
  Receive Date: 20120504
  Receipt Date: 20120426
  Transmission Date: 20120825
  Serious: Yes (Hospitalization, Other)
  Sender: FDA-Public Use
  Company Number: PHHY2011US61807

PATIENT
  Sex: Female
  Weight: 76.6 kg

DRUGS (2)
  1. EXJADE [Suspect]
     Indication: IRON OVERLOAD
  2. EXJADE [Suspect]
     Indication: NEOPLASM
     Dosage: 1000 MG, QD
     Route: 048
     Dates: start: 20110621

REACTIONS (3)
  - HYPONATRAEMIA [None]
  - NAUSEA [None]
  - GASTROINTESTINAL HAEMORRHAGE [None]
